FAERS Safety Report 18468529 (Version 1)
Quarter: 2020Q4

REPORT INFORMATION
  Report Type: Report from Study
  Country: US (occurrence: US)
  Receive Date: 20201105
  Receipt Date: 20201105
  Transmission Date: 20210114
  Serious: No
  Sender: FDA-Public Use
  Company Number: NVSC2020US292315

PATIENT
  Sex: Male

DRUGS (1)
  1. GILENYA [Suspect]
     Active Substance: FINGOLIMOD HYDROCHLORIDE
     Indication: MULTIPLE SCLEROSIS
     Dosage: 0.5 MG, QD
     Route: 048

REACTIONS (7)
  - Muscular weakness [Unknown]
  - Muscle spasms [Unknown]
  - Pain in extremity [Unknown]
  - Hypoaesthesia [Unknown]
  - Tremor [Unknown]
  - Fall [Unknown]
  - Paraesthesia [Unknown]
